FAERS Safety Report 7551645-1 (Version None)
Quarter: 2011Q2

REPORT INFORMATION
  Report Type: 
  Country: None (occurrence: None)
  Receive Date: 20110616
  Receipt Date: 20110612
  Transmission Date: 20111010
  Serious: No
  Sender: FDA-Public Use
  Company Number: US-TEVA-286359USA

PATIENT
  Sex: Female
  Weight: 56.75 kg

DRUGS (2)
  1. PLAN B ONE-STEP [Suspect]
     Dosage: 1.5 MILLIGRAM;
     Route: 048
  2. PLAN B ONE-STEP [Suspect]
     Indication: POST COITAL CONTRACEPTION
     Dosage: 1.5 MILLIGRAM;
     Route: 048

REACTIONS (9)
  - VOMITING [None]
  - ABDOMINAL PAIN LOWER [None]
  - HEADACHE [None]
  - NAUSEA [None]
  - BREAST PAIN [None]
  - VAGINAL DISCHARGE [None]
  - DIZZINESS [None]
  - FATIGUE [None]
  - MENSTRUATION IRREGULAR [None]
